FAERS Safety Report 8813356 (Version 1)
Quarter: 2012Q4

REPORT INFORMATION
  Report Type: 
  Country: US (occurrence: US)
  Receive Date: 20120927
  Receipt Date: 20120927
  Transmission Date: 20130627
  Serious: No
  Sender: FDA-Public Use
  Company Number: US-AMGEN-USASP2012046514

PATIENT
  Age: 79 Year
  Sex: Female
  Weight: 51 kg

DRUGS (15)
  1. PROLIA [Suspect]
     Indication: OSTEOPOROSIS
     Dosage: 60 mg, q6mo
     Route: 058
     Dates: start: 20120523
  2. ADVAIR [Concomitant]
     Dosage: 100 mug, UNK
     Dates: start: 20120411
  3. AMLODIPINE BESILATE [Concomitant]
     Dosage: 10 mg, qd
     Route: 048
     Dates: start: 20120507
  4. FUROSEMIDE [Concomitant]
     Dosage: 40 mg, qd
     Route: 048
     Dates: start: 20110413
  5. LEVOTHYROXINE [Concomitant]
     Dosage: 100 mug, one time dose
     Route: 048
     Dates: start: 20120213
  6. SIMVASTATIN [Concomitant]
     Dosage: UNK
  7. CLONAZEPAM [Concomitant]
     Dosage: 0.25 mg, qid
     Route: 048
     Dates: start: 20101027
  8. DIGOXIN [Concomitant]
     Dosage: 0.125 mg, qd
     Route: 048
     Dates: start: 20111129
  9. MOMETASONE FUROATE [Concomitant]
     Dosage: 0.1 %, bid
     Route: 061
     Dates: start: 20120125
  10. MULTIVITAMIN [Concomitant]
     Dosage: UNK UNK, qd
     Dates: start: 20091019
  11. OMEPRAZOLE [Concomitant]
     Dosage: 20 mg, qd
     Route: 048
     Dates: start: 20091019
  12. OXYGEN [Concomitant]
     Dosage: 2 l, qd
     Dates: start: 20091019
  13. SPIRIVA HANDIHALER [Concomitant]
     Dosage: 18 mug, qd
     Dates: start: 20120411
  14. SPIRIVA HANDIHALER [Concomitant]
     Dosage: 18 mug, qd
     Dates: start: 20110407
  15. WARFARIN SODIUM [Concomitant]
     Dosage: 5 mg, qd
     Route: 048
     Dates: start: 20091008

REACTIONS (2)
  - Pain [Not Recovered/Not Resolved]
  - Myalgia [Not Recovered/Not Resolved]
